FAERS Safety Report 6628465-5 (Version None)
Quarter: 2010Q1

REPORT INFORMATION
  Report Type: 
  Country: None (occurrence: None)
  Receive Date: 20100311
  Receipt Date: 20100302
  Transmission Date: 20100710
  Serious: No
  Sender: FDA-Public Use
  Company Number: US-JNJFOC-20100203435

PATIENT
  Sex: Female
  Weight: 70.31 kg

DRUGS (4)
  1. FENTANYL-100 [Suspect]
     Indication: HEADACHE
     Route: 062
  2. PERCOCET [Concomitant]
     Indication: BREAKTHROUGH PAIN
     Dosage: 7.5/325MG AS NEEDED
     Route: 048
  3. LEXAPRO [Concomitant]
     Indication: SEROTONIN SYNDROME
     Route: 048
  4. MIRALAX [Concomitant]
     Indication: CONSTIPATION
     Route: 048

REACTIONS (4)
  - FEELING JITTERY [None]
  - PRODUCT QUALITY ISSUE [None]
  - WITHDRAWAL SYNDROME [None]
  - WRONG TECHNIQUE IN DRUG USAGE PROCESS [None]
